FAERS Safety Report 12927639 (Version 2)
Quarter: 2017Q1

REPORT INFORMATION
  Report Type: Spontaneous
  Country: NZ (occurrence: NZ)
  Receive Date: 20161109
  Receipt Date: 20170117
  Transmission Date: 20170428
  Serious: Yes (Hospitalization, Other)
  Sender: FDA-Public Use
  Company Number: NZ-ELI_LILLY_AND_COMPANY-NZ201610005948

PATIENT
  Age: 24 Year
  Sex: Male

DRUGS (1)
  1. ZYPREXA RELPREVV [Suspect]
     Active Substance: OLANZAPINE PAMOATE
     Indication: PRODUCT USED FOR UNKNOWN INDICATION
     Dosage: 405 MG, MONTHLY (1/M)
     Route: 030
     Dates: start: 20151126

REACTIONS (10)
  - Somnolence [Recovering/Resolving]
  - Aggression [Recovering/Resolving]
  - Mood altered [Recovering/Resolving]
  - Injection site haemorrhage [Unknown]
  - Sleep disorder [Unknown]
  - Delirium [Recovering/Resolving]
  - Sedation [Recovering/Resolving]
  - Fatigue [Unknown]
  - Gait disturbance [Unknown]
  - Dysarthria [Unknown]

NARRATIVE: CASE EVENT DATE: 20161019
